FAERS Safety Report 24149879 (Version 1)
Quarter: 2024Q3

REPORT INFORMATION
  Report Type: Report from Study
  Country: US (occurrence: None)
  Receive Date: 20240730
  Receipt Date: 20240730
  Transmission Date: 20241017
  Serious: Yes (Hospitalization, Other)
  Sender: ASTRAZENECA
  Company Number: 2021A068315

PATIENT
  Sex: Female

DRUGS (1)
  1. FASENRA [Suspect]
     Active Substance: BENRALIZUMAB
     Indication: Eosinophilic granulomatosis with polyangiitis
     Dosage: 30 ML EVERY 28 DAYS
     Route: 058

REACTIONS (6)
  - Mass [Unknown]
  - Vasculitis [Unknown]
  - Rash papular [Unknown]
  - Dyspnoea [Unknown]
  - Incision site vesicles [Not Recovered/Not Resolved]
  - Hypersensitivity [Unknown]
